FAERS Safety Report 12486491 (Version 1)
Quarter: 2016Q2

REPORT INFORMATION
  Report Type: Not Available
  Country: None (occurrence: US)
  Receive Date: 20160621
  Receipt Date: 20160621
  Transmission Date: 20160815
  Serious: No
  Sender: FDA-Public Use
  Company Number: US-AKORN-27358

PATIENT
  Age: 34 Year
  Sex: Male
  Weight: 84 kg

DRUGS (1)
  1. VALPROIC ACID ORAL SOLUTION [Suspect]
     Active Substance: VALPROIC ACID

REACTIONS (2)
  - Insomnia [Recovered/Resolved]
  - Hypertension [Recovered/Resolved]
